FAERS Safety Report 4280340-X (Version None)
Quarter: 2004Q1

REPORT INFORMATION
  Report Type: 
  Country: None (occurrence: None)
  Receive Date: 20040126
  Receipt Date: 20040114
  Transmission Date: 20041129
  Serious: No
  Sender: FDA-Public Use
  Company Number: 04P-163-0247206-00

PATIENT
  Age: 64 Year
  Sex: Female

DRUGS (14)
  1. HUMIRA [Suspect]
     Indication: RHEUMATOID ARTHRITIS
     Dosage: 40 MG, 1 IN 2 WK, SUBCUTANEOUS
     Route: 058
     Dates: start: 20031101, end: 20031201
  2. PREDNISONE [Suspect]
  3. LEVOTHYROXINE SODIUM [Concomitant]
  4. NAPROXEN [Concomitant]
  5. ESOMEPRAZOLE [Concomitant]
  6. CYCLOPHOSPHAMIDE [Concomitant]
  7. SULFASALAZINE [Concomitant]
  8. ESTROGENS CONJUGATED [Concomitant]
  9. PROPACET 100 [Concomitant]
  10. NOVOLIN 20/80 [Concomitant]
  11. LOSARTAN POTASSIUM [Concomitant]
  12. GABAPENTIN [Concomitant]
  13. METOPROLOL SUCCINATE [Concomitant]
  14. GLIPIZIDE [Concomitant]

REACTIONS (2)
  - CELLULITIS [None]
  - SKIN ULCER [None]
